FAERS Safety Report 8620015-7 (Version None)
Quarter: 2012Q3

REPORT INFORMATION
  Report Type: 
  Country: None (occurrence: None)
  Receive Date: 20120824
  Receipt Date: 20120820
  Transmission Date: 20120928
  Serious: Yes (Hospitalization, Other)
  Sender: FDA-Public Use
  Company Number: PHHY2012FR041760

PATIENT
  Sex: Female
  Weight: 80 kg

DRUGS (3)
  1. AMANTADINE HCL [Concomitant]
  2. TAMSULOSIN HCL [Concomitant]
  3. GILENYA [Suspect]
     Indication: MULTIPLE SCLEROSIS
     Dosage: 0.5 MG, QD
     Route: 048
     Dates: start: 20120126, end: 20120505

REACTIONS (2)
  - PYELONEPHRITIS [None]
  - LYMPHOPENIA [None]
